FAERS Safety Report 9172056 (Version 1)
Quarter: 2013Q1

REPORT INFORMATION
  Report Type: Report from Study
  Country: US (occurrence: US)
  Receive Date: 20130319
  Receipt Date: 20130319
  Transmission Date: 20140127
  Serious: Yes (Hospitalization, Other)
  Sender: FDA-Public Use
  Company Number: US-BAYER-2013-011439

PATIENT
  Age: 81 Year
  Sex: Male

DRUGS (3)
  1. STIVARGA [Suspect]
     Indication: COLORECTAL CANCER
     Dosage: 160 MG, QD
     Dates: start: 20130116
  2. STIVARGA [Suspect]
     Indication: COLORECTAL CANCER
     Dosage: 80 MG, BID
     Route: 048
     Dates: start: 20130121, end: 20130123
  3. STIVARGA [Suspect]
     Indication: COLORECTAL CANCER
     Dosage: 160 MG, QD
     Route: 048
     Dates: start: 20130123, end: 20130204

REACTIONS (7)
  - Anuria [Not Recovered/Not Resolved]
  - Colorectal cancer metastatic [Not Recovered/Not Resolved]
  - Malaise [None]
  - Skin discolouration [None]
  - Insomnia [Recovered/Resolved]
  - Wound [None]
  - Diarrhoea [None]
